FAERS Safety Report 7861876-9 (Version None)
Quarter: 2011Q4

REPORT INFORMATION
  Report Type: 
  Country: None (occurrence: None)
  Receive Date: 20111027
  Receipt Date: 20101117
  Transmission Date: 20120403
  Serious: No
  Sender: FDA-Public Use
  Company Number: US-AMGEN-USASP2010005567

PATIENT
  Age: 36 Year
  Sex: Female

DRUGS (2)
  1. ENBREL [Suspect]
     Indication: RHEUMATOID ARTHRITIS
     Dates: start: 20090423
  2. METHOTREXATE [Concomitant]

REACTIONS (4)
  - PARAESTHESIA [None]
  - FEELING ABNORMAL [None]
  - INJECTION SITE SWELLING [None]
  - NAUSEA [None]
